FAERS Safety Report 5812648-8 (Version None)
Quarter: 2008Q3

REPORT INFORMATION
  Report Type: 
  Country: None (occurrence: None)
  Receive Date: 20080711
  Receipt Date: 20080609
  Transmission Date: 20090109
  Serious: Yes (Other)
  Sender: FDA-Public Use
  Company Number: 2008S1007400

PATIENT
  Age: 18 Year
  Sex: Male
  Weight: 60.782 kg

DRUGS (1)
  1. FENTANYL-100 [Suspect]
     Dosage: TRANSDERMAL
     Route: 062

REACTIONS (2)
  - DRUG ABUSE [None]
  - INCORRECT ROUTE OF DRUG ADMINISTRATION [None]
